FAERS Safety Report 8781413 (Version 1)
Quarter: 2012Q4

REPORT INFORMATION
  Report Type: 
  Country: US (occurrence: US)
  Receive Date: 20120913
  Receipt Date: 20120913
  Transmission Date: 20130627
  Serious: Yes (Other)
  Sender: FDA-Public Use
  Company Number: US-ASTRAZENECA-2012SE69590

PATIENT
  Age: 65 Year
  Sex: Female
  Weight: 77.1 kg

DRUGS (9)
  1. PULMICORT RESPULES [Suspect]
     Indication: SINUSITIS
     Route: 055
     Dates: start: 2009
  2. ADVAIR [Concomitant]
     Indication: ASTHMA
     Dosage: 100/50 DAILY
     Route: 055
  3. SINGULAIR [Concomitant]
     Indication: ASTHMA
     Route: 048
  4. WELBUTRIN [Concomitant]
     Indication: ANXIETY
     Route: 048
     Dates: start: 2000
  5. WELBUTRIN [Concomitant]
     Indication: DEPRESSION
     Route: 048
     Dates: start: 2000
  6. PROAIR [Concomitant]
     Indication: RESPIRATORY DISORDER
     Dosage: AS NEEDED
     Route: 055
  7. SYNTHROID [Concomitant]
     Indication: THYROID DISORDER
     Route: 048
     Dates: start: 1997
  8. IMITREX [Concomitant]
     Indication: MIGRAINE
     Dosage: SOMETIMES 3 TIMES A MONTH AND SOMETIMES ONCE IN 6 MONTHS
  9. IMITREX [Concomitant]
     Indication: MIGRAINE

REACTIONS (4)
  - Sinus polyp [Unknown]
  - Asthma [Unknown]
  - Migraine [Unknown]
  - Off label use [Unknown]
